FAERS Safety Report 8005937-2 (Version None)
Quarter: 2011Q4

REPORT INFORMATION
  Report Type: 
  Country: None (occurrence: None)
  Receive Date: 20111223
  Receipt Date: 20111212
  Transmission Date: 20120403
  Serious: Yes (Other)
  Sender: FDA-Public Use
  Company Number: US-AMGEN-KDL354138

PATIENT
  Age: 36 Year
  Sex: Female

DRUGS (5)
  1. PLAQUENIL [Concomitant]
     Dates: start: 20030101
  2. ENBREL [Suspect]
     Indication: AUTOIMMUNE DISORDER
  3. ENBREL [Suspect]
     Indication: SPONDYLITIS
  4. ENBREL [Suspect]
     Indication: RHEUMATOID ARTHRITIS
     Dosage: 50 MG, QWK
     Route: 058
     Dates: start: 20080401
  5. METHOTREXATE [Concomitant]
     Dosage: UNK UNK, UNK
     Dates: end: 20090201

REACTIONS (5)
  - DIARRHOEA [None]
  - LIVER DISORDER [None]
  - HEPATIC ENZYME INCREASED [None]
  - AUTOIMMUNE DISORDER [None]
  - GASTROINTESTINAL DISORDER [None]
